FAERS Safety Report 6512108-5 (Version None)
Quarter: 2009Q4

REPORT INFORMATION
  Report Type: 
  Country: None (occurrence: None)
  Receive Date: 20091222
  Receipt Date: 20090723
  Transmission Date: 20100525
  Serious: No
  Sender: FDA-Public Use
  Company Number: US-ASTRAZENECA-2009UW14164

PATIENT
  Age: 65 Year
  Sex: Female
  Weight: 62.1 kg

DRUGS (2)
  1. CRESTOR [Suspect]
     Route: 048
     Dates: start: 20081001
  2. TOPROL-XL [Concomitant]
     Route: 048

REACTIONS (4)
  - DRUG HYPERSENSITIVITY [None]
  - EYE DISORDER [None]
  - RASH [None]
  - SWOLLEN TONGUE [None]
